FAERS Safety Report 5174052-8 (Version None)
Quarter: 2006Q4

REPORT INFORMATION
  Report Type: 
  Country: None (occurrence: None)
  Receive Date: 20061214
  Receipt Date: 20060424
  Transmission Date: 20070319
  Serious: No
  Sender: FDA-Public Use
  Company Number: US-AMGEN-US177318

PATIENT
  Sex: Female

DRUGS (5)
  1. ENBREL [Suspect]
     Indication: RHEUMATOID ARTHRITIS
     Route: 058
     Dates: start: 20050501
  2. METHOTREXATE [Concomitant]
     Dates: start: 20030101
  3. FOSAMAX [Concomitant]
     Dates: start: 20030101
  4. CELEBRA [Concomitant]
     Dates: start: 20030101
  5. FOLIC ACID [Concomitant]
     Dates: start: 20030101

REACTIONS (1)
  - RASH [None]
